FAERS Safety Report 6189652-6 (Version None)
Quarter: 2009Q2

REPORT INFORMATION
  Report Type: 
  Country: None (occurrence: None)
  Receive Date: 20090514
  Receipt Date: 20090505
  Transmission Date: 20091009
  Serious: Yes (Other)
  Sender: FDA-Public Use
  Company Number: US-BAYER-200915740NA

PATIENT
  Age: 28 Year
  Sex: Female
  Weight: 117 kg

DRUGS (5)
  1. MIRENA [Suspect]
     Indication: CONTRACEPTION
     Route: 015
     Dates: start: 20071218
  2. WELLBUTRIN [Concomitant]
  3. BUSPAR [Concomitant]
  4. VALTREX [Concomitant]
  5. ERODUS [Concomitant]
     Indication: PAIN

REACTIONS (4)
  - IUCD COMPLICATION [None]
  - IUD MIGRATION [None]
  - PELVIC PAIN [None]
  - SMEAR CERVIX ABNORMAL [None]
